FAERS Safety Report 8339128-2 (Version None)
Quarter: 2012Q2

REPORT INFORMATION
  Report Type: 
  Country: None (occurrence: None)
  Receive Date: 20120507
  Receipt Date: 20120502
  Transmission Date: 20120825
  Serious: No
  Sender: FDA-Public Use
  Company Number: US-PFIZER INC-2012108655

PATIENT

DRUGS (3)
  1. LYRICA [Suspect]
     Dosage: 100 MG, 3X/DAY (50 MG 2 TID)
  2. PRILOSEC [Concomitant]
     Dosage: UNK
  3. MIRTAZAPINE [Concomitant]
     Dosage: UNK

REACTIONS (2)
  - GAIT DISTURBANCE [None]
  - HYPOAESTHESIA [None]
